FAERS Safety Report 9467576 (Version 9)
Quarter: 2014Q1

REPORT INFORMATION
  Report Type: Report from Study
  Country: US (occurrence: US)
  Receive Date: 20130821
  Receipt Date: 20140210
  Transmission Date: 20141002
  Serious: Yes (Life-Threatening, Hospitalization)
  Sender: FDA-Public Use
  Company Number: US-MERCK-1212USA006165

PATIENT
  Age: 62 Year
  Sex: Female
  Weight: 67.7 kg

DRUGS (35)
  1. BLINDED VARICELLA-ZOSTER VIRUS VACCINE INACTIVATED (OKA/MERCK) [Suspect]
     Indication: PROPHYLAXIS
     Route: 058
     Dates: start: 20121128, end: 20121128
  2. BLINDED VARICELLA-ZOSTER VIRUS VACCINE INACTIVATED (OKA/MERCK) [Suspect]
     Route: 058
     Dates: start: 20130201, end: 20130201
  3. BLINDED VARICELLA-ZOSTER VIRUS VACCINE INACTIVATED (OKA/MERCK) [Suspect]
     Route: 058
     Dates: start: 20130301, end: 20130301
  4. BLINDED VARICELLA-ZOSTER VIRUS VACCINE INACTIVATED (OKA/MERCK) [Suspect]
     Route: 058
     Dates: start: 20130327, end: 20130327
  5. CEFTAZIDIME [Suspect]
     Indication: FEBRILE NEUTROPENIA
     Dosage: 2 G DAILY, PRN
     Route: 042
     Dates: start: 20121208, end: 20121209
  6. VANCOMYCIN [Suspect]
     Indication: FEBRILE NEUTROPENIA
     Dosage: 1 G, QD
     Route: 042
     Dates: start: 20121209, end: 20121212
  7. IMIPENEM (+) CILASTATIN SODIUM [Suspect]
     Indication: FEBRILE NEUTROPENIA
     Dosage: 500 MG, BID
     Route: 042
     Dates: start: 20121209, end: 20121212
  8. MELPHALAN [Suspect]
     Indication: CHEMOTHERAPY
     Dosage: UNK, ONCE
     Route: 042
     Dates: start: 20121201, end: 20121201
  9. ACETAMINOPHEN [Concomitant]
     Indication: PROPHYLAXIS OF NAUSEA AND VOMITING
     Dosage: 650 MG DAILY, ONCE
     Route: 048
     Dates: start: 20121203, end: 20121203
  10. CALCIUM (UNSPECIFIED) (+) VITAMIN D (UNSPECIFIED) [Concomitant]
     Indication: VITAMIN SUPPLEMENTATION
     Dosage: 1 TABLET, BID
     Route: 048
     Dates: start: 20121104, end: 20121126
  11. DIPHENHYDRAMINE HYDROCHLORIDE [Concomitant]
     Indication: PROPHYLAXIS OF NAUSEA AND VOMITING
     Dosage: 50 MG DAILY, PRN
     Route: 048
     Dates: start: 20121128, end: 20130122
  12. DIPHENHYDRAMINE HYDROCHLORIDE [Concomitant]
     Indication: PROPHYLAXIS OF NAUSEA AND VOMITING
     Dosage: 25 MG DAILY, ONCE
     Route: 042
     Dates: start: 20121203, end: 20121203
  13. FLUCONAZOLE [Concomitant]
     Indication: ANTIFUNGAL PROPHYLAXIS
     Dosage: 200 MG, QD
     Route: 048
     Dates: start: 20121128, end: 20121222
  14. GLUCOSAMINE [Concomitant]
     Indication: VITAMIN SUPPLEMENTATION
     Dosage: UNK
     Route: 048
     Dates: start: 20121114, end: 20121204
  15. HYDROCORTISONE SODIUM PHOSPHATE [Concomitant]
     Indication: PROPHYLAXIS
     Dosage: 250 MG DAILY, ONCE
     Route: 042
     Dates: start: 20121203, end: 20121203
  16. LEVOFLOXACIN [Concomitant]
     Indication: PROPHYLAXIS
     Dosage: 750 MG, QD
     Route: 048
     Dates: start: 20121206, end: 20121222
  17. LISINOPRIL [Concomitant]
     Indication: HYPERTENSION
     Dosage: 2.5 MG, QD
     Route: 048
     Dates: start: 20121101, end: 20121222
  18. LORAZEPAM [Concomitant]
     Indication: PROPHYLAXIS OF NAUSEA AND VOMITING
     Dosage: 2 MG DAILY, PRN
     Route: 048
     Dates: start: 20121128, end: 20130301
  19. LORAZEPAM [Concomitant]
     Indication: PROPHYLAXIS OF NAUSEA AND VOMITING
     Dosage: 1 MG DAILY, ONCE
     Route: 042
     Dates: start: 20121202, end: 20121202
  20. MAGNESIUM SULFATE [Concomitant]
     Indication: HYPOMAGNESAEMIA
     Dosage: 16 MG DAILY, ONCE
     Route: 042
     Dates: start: 20121204, end: 20121204
  21. MAGNESIUM SULFATE [Concomitant]
     Dosage: 16 MG DAILY, ONCE
     Route: 042
     Dates: start: 20121206, end: 20121206
  22. MINERALS (UNSPECIFIED) (+) VITAMINS (UNSPECIFIED) [Concomitant]
     Indication: VITAMIN SUPPLEMENTATION
     Dosage: 1 TABLET, QD
     Route: 048
     Dates: start: 20121114
  23. OMEPRAZOLE [Concomitant]
     Indication: GASTROOESOPHAGEAL REFLUX DISEASE
     Dosage: 20 MG, QD
     Route: 048
     Dates: start: 20121114, end: 20130201
  24. ONDANSETRON HYDROCHLORIDE [Concomitant]
     Indication: PROPHYLAXIS OF NAUSEA AND VOMITING
     Dosage: 8 MG DAILY, PRN
     Route: 048
     Dates: start: 20121128, end: 20121222
  25. ONDANSETRON HYDROCHLORIDE [Concomitant]
     Indication: PROPHYLAXIS OF NAUSEA AND VOMITING
     Dosage: 8 MG, QD
     Route: 042
     Dates: start: 20121201, end: 20121202
  26. OXYCODONE [Concomitant]
     Indication: PAIN
     Dosage: 10 MG DAILY, PRN
     Route: 048
     Dates: start: 20121102, end: 20121222
  27. VALACYCLOVIR HYDROCHLORIDE [Concomitant]
     Indication: INFECTION PROPHYLAXIS
     Dosage: 500 MG, BID
     Route: 048
     Dates: start: 20121128, end: 20121222
  28. VALACYCLOVIR HYDROCHLORIDE [Concomitant]
     Dosage: 250 MG, BID
     Route: 048
     Dates: start: 20121104, end: 20121127
  29. WARFARIN [Concomitant]
     Indication: PROPHYLAXIS
     Dosage: 1 MG, QD
     Route: 048
     Dates: start: 20121114, end: 20130130
  30. POTASSIUM CHLORIDE [Concomitant]
     Indication: HYPOKALAEMIA
     Dosage: 20 MEQ DAILY, ONCE
     Route: 042
     Dates: start: 20121201, end: 20121201
  31. POTASSIUM CHLORIDE [Concomitant]
     Dosage: 20 MEQ DAILY, ONCE
     Route: 042
     Dates: start: 20121206, end: 20121206
  32. POTASSIUM CHLORIDE [Concomitant]
     Indication: HYPOKALAEMIA
     Dosage: 40 MEQ DAILY, ONCE
     Route: 042
     Dates: start: 20121204, end: 20121204
  33. MELPHALAN [Concomitant]
     Indication: CHEMOTHERAPY
     Dosage: 344 MG DAILY, ONCE
     Route: 042
     Dates: start: 20121201, end: 20121201
  34. MELPHALAN [Concomitant]
     Indication: CHEMOTHERAPY
  35. ONDANSETRON HYDROCHLORIDE [Concomitant]
     Indication: PROPHYLAXIS OF NAUSEA AND VOMITING
     Dosage: 16 MG DAILY, ONCE
     Route: 042
     Dates: start: 20121203, end: 20121203

REACTIONS (6)
  - Febrile neutropenia [Recovered/Resolved]
  - Mucosal inflammation [Recovered/Resolved]
  - Respiratory syncytial virus infection [Recovered/Resolved]
  - Drug hypersensitivity [Recovered/Resolved]
  - Systemic inflammatory response syndrome [Recovered/Resolved]
  - Pyrexia [Recovered/Resolved]
